FAERS Safety Report 4873708-1 (Version None)
Quarter: 2006Q1

REPORT INFORMATION
  Report Type: 
  Country: None (occurrence: None)
  Receive Date: 20060106
  Receipt Date: 20051227
  Transmission Date: 20060701
  Serious: Yes (Life-Threatening, Hospitalization)
  Sender: FDA-Public Use
  Company Number: JP-JNJFOC-20050900771

PATIENT
  Sex: Female
  Weight: 45 kg

DRUGS (19)
  1. REMICADE [Suspect]
     Route: 042
  2. REMICADE [Suspect]
     Route: 042
  3. REMICADE [Suspect]
     Route: 042
  4. REMICADE [Suspect]
     Indication: RHEUMATOID ARTHRITIS
     Route: 042
  5. METHOTREXATE [Concomitant]
     Indication: RHEUMATOID ARTHRITIS
     Route: 048
  6. PREDONINE [Concomitant]
     Indication: RHEUMATOID ARTHRITIS
     Route: 048
  7. VOLTAREN [Concomitant]
     Indication: RHEUMATOID ARTHRITIS
     Route: 048
  8. ADRENAL HORMONE PREPARATIONS [Concomitant]
     Indication: RHEUMATOID ARTHRITIS
     Route: 065
  9. SELOKEN [Concomitant]
     Indication: ARRHYTHMIA
     Route: 048
  10. ISONIAZID [Concomitant]
     Indication: ANTIBIOTIC PROPHYLAXIS
     Route: 048
  11. COLCHICINE [Concomitant]
     Route: 048
  12. OMEPRAL [Concomitant]
     Route: 048
  13. PENTASA [Concomitant]
     Route: 048
  14. BENET [Concomitant]
     Route: 048
  15. ULCERMIN [Concomitant]
     Route: 048
  16. LOPEMIN [Concomitant]
     Route: 048
  17. SOSEGON [Concomitant]
     Route: 048
  18. SOLU-MEDROL [Concomitant]
     Indication: PREMEDICATION
     Route: 042
  19. NEO-MINOPHAGEN-C [Concomitant]
     Indication: PREMEDICATION
     Route: 042

REACTIONS (8)
  - ATRIAL FIBRILLATION [None]
  - CARDIAC ARREST [None]
  - CONVULSION [None]
  - DRUG ADMINISTRATION ERROR [None]
  - ENDOCARDITIS [None]
  - RESPIRATORY ARREST [None]
  - URTICARIA [None]
  - VENTRICULAR FIBRILLATION [None]
